FAERS Safety Report 17200533 (Version 1)
Quarter: 2019Q4

REPORT INFORMATION
  Report Type: Report from Study
  Country: JP (occurrence: JP)
  Receive Date: 20191226
  Receipt Date: 20191226
  Transmission Date: 20200122
  Serious: Yes (Death, Life-Threatening, Other)
  Sender: FDA-Public Use
  Company Number: JP-AUROBINDO-AUR-APL-2019-106763

PATIENT
  Age: 73 Year
  Sex: Female
  Weight: 62 kg

DRUGS (55)
  1. LEUCOVORIN. [Concomitant]
     Active Substance: LEUCOVORIN
     Dosage: 9 DOSAGE FORM, ONCE A DAY
     Route: 048
     Dates: start: 20191010, end: 20191010
  2. PREDONINE [Concomitant]
     Active Substance: PREDNISOLONE
     Dosage: 30 MILLIGRAM, ONCE A DAY
     Route: 048
     Dates: start: 20191018, end: 20191029
  3. PREDONINE [Concomitant]
     Active Substance: PREDNISOLONE
     Dosage: 20 MILLIGRAM, ONCE A DAY
     Route: 048
     Dates: start: 20191030, end: 20191111
  4. AZ [Concomitant]
     Indication: DRY MOUTH
     Dosage: Q.V, AS NEEDED
     Route: 049
     Dates: start: 20191001
  5. SENNOSIDE [Concomitant]
     Active Substance: SENNOSIDES
     Indication: CONSTIPATION
     Dosage: 24 MILLIGRAM, ONCE A DAY
     Route: 048
     Dates: start: 20191013
  6. VFEND [Concomitant]
     Active Substance: VORICONAZOLE
     Indication: INFECTION
     Dosage: 300 MILLIGRAM, ONCE A DAY
     Route: 048
     Dates: start: 20191019, end: 20191019
  7. VFEND [Concomitant]
     Active Substance: VORICONAZOLE
     Dosage: 200 MILLIGRAM, ONCE A DAY
     Route: 048
     Dates: start: 20191020, end: 20191029
  8. SOLU-CORTEF [Concomitant]
     Active Substance: HYDROCORTISONE SODIUM SUCCINATE
     Indication: ANAPLASTIC LARGE-CELL LYMPHOMA
     Dosage: 100 MILLIGRAM, AS NEEDED
     Route: 042
     Dates: start: 20191106
  9. OLIVE OIL [Concomitant]
     Active Substance: OLIVE OIL
     Indication: ANAPLASTIC LARGE-CELL LYMPHOMA
     Dosage: Q. V, AS NEEDED
     Route: 061
     Dates: start: 20191018
  10. PANTETHINE [Concomitant]
     Active Substance: PANTETHINE
     Indication: CONSTIPATION
     Dosage: 300 MILLIGRAM, ONCE A DAY
     Route: 048
  11. CEFMETAZOLE SODIUM [Concomitant]
     Active Substance: CEFMETAZOLE SODIUM
     Indication: INFECTION
     Dosage: 1 GRAM, ONCE A DAY
     Route: 042
     Dates: start: 20191018
  12. AZUNOL [Concomitant]
     Indication: PRODUCT USED FOR UNKNOWN INDICATION
     Dosage: Q. V, AS NEEDED
     Route: 061
     Dates: start: 20191110
  13. FOLOTYN [Suspect]
     Active Substance: PRALATREXATE
     Indication: ANAPLASTIC LARGE-CELL LYMPHOMA
     Dosage: 30 MILLIGRAM/SQ. METER
     Route: 042
     Dates: start: 20191001, end: 20191008
  14. NEORESTAR [Concomitant]
     Active Substance: CHLORPHENIRAMINE MALEATE
     Indication: ALLERGY PROPHYLAXIS
     Dosage: 10 MILLIGRAM, AS NEEDED
     Route: 042
     Dates: start: 20191007
  15. MAXIPIME [Concomitant]
     Active Substance: CEFEPIME HYDROCHLORIDE
     Indication: INFECTION
     Dosage: 2 GRAM, ONCE A DAY
     Route: 042
     Dates: start: 201910
  16. OMEPRAZOLE. [Concomitant]
     Active Substance: OMEPRAZOLE
     Indication: GASTRITIS PROPHYLAXIS
     Dosage: 40 MILLIGRAM, ONCE A DAY
     Route: 042
     Dates: start: 20191029
  17. TELEMINSOFT [Concomitant]
     Active Substance: BISACODYL
     Indication: CONSTIPATION
     Dosage: 10 MILLIGRAM, ONCE A DAY
     Route: 054
     Dates: start: 20191004
  18. PREDONINE [Concomitant]
     Active Substance: PREDNISOLONE
     Dosage: 15 MILLIGRAM, ONCE A DAY
     Route: 048
     Dates: start: 20191016, end: 20191017
  19. BAKTAR [Concomitant]
     Active Substance: SULFAMETHOXAZOLE\TRIMETHOPRIM
     Indication: INFECTION PROPHYLAXIS
     Dosage: 480 MILLIGRAM, EVERY WEEK
     Route: 048
     Dates: start: 20191002
  20. VICCLOX [Concomitant]
     Active Substance: ACYCLOVIR SODIUM
     Indication: INFECTION PROPHYLAXIS
     Dosage: 200 MILLIGRAM, ONCE A DAY
     Route: 048
     Dates: start: 20191017
  21. LEUCOVORIN. [Concomitant]
     Active Substance: LEUCOVORIN
     Dosage: 6 DOSAGE FORM, ONCE A DAY
     Route: 048
     Dates: start: 20191009, end: 20191009
  22. LEUCOVORIN. [Concomitant]
     Active Substance: LEUCOVORIN
     Dosage: 5 DOSAGE FORM, ONCE A DAY
     Route: 048
     Dates: start: 20191019, end: 20191019
  23. PREDONINE [Concomitant]
     Active Substance: PREDNISOLONE
     Indication: ANAPLASTIC LARGE-CELL LYMPHOMA
     Dosage: 20 MILLIGRAM, ONCE A DAY
     Route: 048
     Dates: start: 20190924, end: 20191015
  24. NEXIUM [Concomitant]
     Active Substance: ESOMEPRAZOLE MAGNESIUM
     Indication: GASTRITIS PROPHYLAXIS
     Dosage: 20 MILLIGRAM, ONCE A DAY
     Route: 048
  25. SULBACILLIN [Concomitant]
     Active Substance: AMPICILLIN SODIUM\SULBACTAM SODIUM
     Indication: INFECTION PROPHYLAXIS
     Dosage: 3.0 MILLIGRAM, ONCE A DAY
     Route: 042
     Dates: start: 20191001
  26. SOSEGON [Concomitant]
     Active Substance: PENTAZOCINE
     Indication: ANALGESIC THERAPY
     Dosage: 15 MILLIGRAM, ONCE A DAY
     Route: 042
     Dates: start: 20191001
  27. VANCOMYCIN HYDROCHLORIDE. [Concomitant]
     Active Substance: VANCOMYCIN HYDROCHLORIDE
     Indication: INFECTION
     Dosage: 2 GRAM, ONCE A DAY
     Route: 042
     Dates: start: 20191018
  28. MEROPENEM. [Concomitant]
     Active Substance: MEROPENEM
     Indication: INFECTION
     Dosage: 2 GRAM, ONCE A DAY
     Route: 042
     Dates: start: 20191027
  29. MAGNESIUM OXIDE. [Concomitant]
     Active Substance: MAGNESIUM OXIDE
     Indication: CONSTIPATION
     Dosage: 250 MILLIGRAM, AS NEEDED
     Route: 048
  30. WHITE PETROLATUM [Concomitant]
     Active Substance: PETROLATUM
     Indication: ANAPLASTIC LARGE-CELL LYMPHOMA
     Dosage: Q.V, AS NEEDED
     Route: 061
     Dates: start: 20191001
  31. ITRACONAZOLE. [Concomitant]
     Active Substance: ITRACONAZOLE
     Indication: TONGUE COATED
     Dosage: 20 MILLILITER, ONCE A DAY
     Route: 048
     Dates: start: 20191001
  32. NEOPHAGEN [Concomitant]
     Active Substance: GLYCYRRHIZIN
     Indication: PROPHYLAXIS
     Dosage: 40 MILLILITER, ONCE A DAY
     Route: 042
     Dates: start: 20191008
  33. FUNGUARD [Concomitant]
     Active Substance: MICAFUNGIN SODIUM
     Indication: INFECTION PROPHYLAXIS
     Dosage: 50 MILLIGRAM, ONCE A DAY
     Route: 042
     Dates: start: 20191025
  34. ZOSYN [Concomitant]
     Active Substance: PIPERACILLIN SODIUM\TAZOBACTAM SODIUM
     Indication: INFECTION
     Dosage: 13.5 GRAM, ONCE A DAY
     Route: 042
     Dates: start: 20191011
  35. LIDOCAINE HYDROCHLORIDE. [Concomitant]
     Active Substance: LIDOCAINE HYDROCHLORIDE
     Indication: PRODUCT USED FOR UNKNOWN INDICATION
     Dosage: Q. V, AS NEEDED
     Route: 061
     Dates: start: 20191010
  36. PANVITAN [Concomitant]
     Active Substance: VITAMINS
     Indication: PROPHYLAXIS
     Dosage: 2 GRAM, ONCE A DAY
     Route: 048
     Dates: start: 20190924
  37. LEUCOVORIN. [Concomitant]
     Active Substance: LEUCOVORIN
     Dosage: 3 DOSAGE FORM, ONCE A DAY
     Route: 048
     Dates: start: 20191011, end: 20191011
  38. LEUCOVORIN. [Concomitant]
     Active Substance: LEUCOVORIN
     Dosage: 10 DOSAGE FORM, ONCE A DAY
     Route: 048
     Dates: start: 20191017, end: 20191017
  39. FEBURIC [Concomitant]
     Active Substance: FEBUXOSTAT
     Indication: PROPHYLAXIS
     Dosage: 60 MILLIGRAM, ONCE A DAY
     Route: 048
     Dates: start: 20191001
  40. ZINC OXIDE. [Concomitant]
     Active Substance: ZINC OXIDE
     Indication: ANAPLASTIC LARGE-CELL LYMPHOMA
     Dosage: Q.V, AS NEEDED
     Route: 061
     Dates: start: 20191001
  41. GLYCERIN. [Concomitant]
     Active Substance: GLYCERIN
     Indication: DRY MOUTH
     Dosage: Q. V, AS NEEDED
     Route: 061
     Dates: start: 20191001
  42. GRANISETRON [Concomitant]
     Active Substance: GRANISETRON
     Indication: PROPHYLAXIS OF NAUSEA AND VOMITING
     Dosage: 1 MILLIGRAM, ONCE A DAY
     Route: 042
     Dates: start: 20191106
  43. ROZEREM [Concomitant]
     Active Substance: RAMELTEON
     Indication: PRODUCT USED FOR UNKNOWN INDICATION
     Dosage: 8 MILLIGRAM, ONCE A DAY
     Route: 048
     Dates: start: 20191103
  44. LEUCOVORIN. [Concomitant]
     Active Substance: LEUCOVORIN
     Indication: PRODUCT USED FOR UNKNOWN INDICATION
     Dosage: 10 DOSAGE FORM, ONCE A DAY
     Route: 048
     Dates: start: 20191002, end: 20191002
  45. LEUCOVORIN. [Concomitant]
     Active Substance: LEUCOVORIN
     Dosage: 15 DOSAGE FORM, ONCE A DAY
     Route: 048
     Dates: start: 20191003, end: 20191003
  46. LEUCOVORIN. [Concomitant]
     Active Substance: LEUCOVORIN
     Dosage: 5 DOSAGE FORM, ONCE A DAY
     Route: 048
     Dates: start: 20191004, end: 20191004
  47. ISTODAX [Concomitant]
     Active Substance: ROMIDEPSIN
     Indication: ANAPLASTIC LARGE-CELL LYMPHOMA
     Dosage: 10 MILLIGRAM, ONCE A DAY
     Route: 042
     Dates: start: 20191106
  48. HEPARINOID [Concomitant]
     Active Substance: CHONDROITIN SULFATE (BOVINE)
     Indication: ANAPLASTIC LARGE-CELL LYMPHOMA
     Dosage: Q. V, AS NEEDED
     Route: 061
  49. FOLOTYN [Suspect]
     Active Substance: PRALATREXATE
     Dosage: 30 MILLIGRAM/SQ. METER, DAILY
     Route: 042
     Dates: start: 20191016, end: 20191016
  50. FRESMIN S [Concomitant]
     Active Substance: HYDROXOCOBALAMIN
     Indication: PROPHYLAXIS
     Dosage: 1 MILLIGRAM
     Route: 042
     Dates: start: 20190924
  51. LEUCOVORIN. [Concomitant]
     Active Substance: LEUCOVORIN
     Dosage: 15 DOSAGE FORM, ONCE A DAY
     Route: 048
     Dates: start: 20191018, end: 20191018
  52. XALATAN [Concomitant]
     Active Substance: LATANOPROST
     Indication: GLAUCOMA
     Dosage: 1 DOSAGE FORM, ONCE A DAY
     Route: 047
  53. ATARAX-P [Concomitant]
     Active Substance: HYDROXYZINE HYDROCHLORIDE
     Indication: PROPHYLAXIS OF NAUSEA AND VOMITING
     Dosage: 25 MILLIGRAM, ONCE A DAY
     Route: 042
     Dates: start: 20191001
  54. ROZEX (METRONIDAZOLE) [Concomitant]
     Active Substance: METRONIDAZOLE
     Indication: ANAPLASTIC LARGE-CELL LYMPHOMA
     Dosage: Q. V, DAILY
     Route: 061
     Dates: start: 20191001
  55. ADCETRIS [Concomitant]
     Active Substance: BRENTUXIMAB VEDOTIN
     Indication: ANAPLASTIC LARGE-CELL LYMPHOMA
     Dosage: 50 MILLIGRAM, ONCE A DAY
     Route: 042
     Dates: start: 20191025

REACTIONS (30)
  - Delirium [Unknown]
  - Insomnia [Unknown]
  - Fall [Recovered/Resolved]
  - Anal erosion [Unknown]
  - Blood pressure increased [Recovered/Resolved]
  - Blood alkaline phosphatase increased [Recovered/Resolved]
  - Diarrhoea [Unknown]
  - Weight decreased [Unknown]
  - Respiratory depression [Recovered/Resolved]
  - Dyspnoea [Unknown]
  - C-reactive protein increased [Recovered/Resolved]
  - Lymphocyte count decreased [Unknown]
  - Anaemia [Recovered/Resolved]
  - Pyrexia [Unknown]
  - Blood uric acid increased [Unknown]
  - Blood lactate dehydrogenase increased [Recovered/Resolved]
  - Platelet count decreased [Unknown]
  - Tumour pain [Unknown]
  - Blood potassium decreased [Recovered/Resolved]
  - Blood sodium decreased [Unknown]
  - Contusion [Recovered/Resolved]
  - Oedema peripheral [Unknown]
  - White blood cell count decreased [Recovered/Resolved]
  - Decreased appetite [Unknown]
  - Nausea [Recovered/Resolved]
  - Blood creatinine increased [Recovered/Resolved]
  - Malignant neoplasm progression [Fatal]
  - Blood urea increased [Unknown]
  - Stomatitis [Unknown]
  - Haemoptysis [Unknown]

NARRATIVE: CASE EVENT DATE: 20190930
